FAERS Safety Report 20941493 (Version 1)
Quarter: 2022Q2

REPORT INFORMATION
  Report Type: Spontaneous
  Country: DE (occurrence: DE)
  Receive Date: 20220610
  Receipt Date: 20220610
  Transmission Date: 20220721
  Serious: Yes (Death)
  Sender: FDA-Public Use
  Company Number: DE-BAYER-2022A078442

PATIENT
  Age: 73 Year
  Sex: Female
  Weight: 70 kg

DRUGS (1)
  1. XARELTO [Suspect]
     Active Substance: RIVAROXABAN
     Indication: Palliative care
     Dosage: 10 MG
     Route: 048

REACTIONS (2)
  - Brain stem haemorrhage [Fatal]
  - Aphasia [Fatal]

NARRATIVE: CASE EVENT DATE: 20220511
